FAERS Safety Report 15806350 (Version 1)
Quarter: 2019Q1

REPORT INFORMATION
  Report Type: Spontaneous
  Country: US (occurrence: US)
  Receive Date: 20190109
  Receipt Date: 20190109
  Transmission Date: 20190417
  Serious: Yes (Other)
  Sender: FDA-Public Use
  Company Number: None

PATIENT
  Sex: Male

DRUGS (17)
  1. LYRICA [Concomitant]
     Active Substance: PREGABALIN
  2. OMEPRAZOLE. [Concomitant]
     Active Substance: OMEPRAZOLE
  3. FLUTICASONE. [Concomitant]
     Active Substance: FLUTICASONE
  4. ALLOPURINOL. [Concomitant]
     Active Substance: ALLOPURINOL
  5. ALPRAZOLAM. [Concomitant]
     Active Substance: ALPRAZOLAM
  6. BACLOFEN. [Concomitant]
     Active Substance: BACLOFEN
  7. CLONAZEPAM. [Concomitant]
     Active Substance: CLONAZEPAM
  8. MIRTAZAPINE. [Concomitant]
     Active Substance: MIRTAZAPINE
  9. REPATHA [Suspect]
     Active Substance: EVOLOCUMAB
     Indication: HYPERLIPIDAEMIA
     Dosage: ?          OTHER FREQUENCY:EVERY 2 WEEKS;?
     Route: 058
     Dates: start: 20180216
  10. DULOXETINE. [Concomitant]
     Active Substance: DULOXETINE
  11. IRBESARTAN. [Concomitant]
     Active Substance: IRBESARTAN
  12. OXYCODONE [Concomitant]
     Active Substance: OXYCODONE
  13. SYMBICORT [Concomitant]
     Active Substance: BUDESONIDE\FORMOTEROL FUMARATE DIHYDRATE
  14. CARVEDILOL. [Concomitant]
     Active Substance: CARVEDILOL
  15. CELECOXIB. [Concomitant]
     Active Substance: CELECOXIB
  16. FUROSEMIDE. [Concomitant]
     Active Substance: FUROSEMIDE
  17. VENTOLIN [Concomitant]
     Active Substance: ALBUTEROL SULFATE

REACTIONS (1)
  - Spinal operation [None]
